FAERS Safety Report 20431980 (Version 1)
Quarter: 2022Q1

REPORT INFORMATION
  Report Type: Spontaneous
  Country: GB (occurrence: GB)
  Receive Date: 20220204
  Receipt Date: 20220204
  Transmission Date: 20220423
  Serious: Yes (Other)
  Sender: FDA-Public Use
  Company Number: None

PATIENT
  Age: 55 Year
  Sex: Female
  Weight: 79 kg

DRUGS (6)
  1. PACLITAXEL [Suspect]
     Active Substance: PACLITAXEL
     Indication: Ovarian cancer stage III
     Route: 051
     Dates: start: 20220118, end: 20220118
  2. DEXAMETHASONE [Concomitant]
     Active Substance: DEXAMETHASONE
  3. DOCUSATE [Concomitant]
     Active Substance: DOCUSATE
  4. DOMPERIDONE [Concomitant]
     Active Substance: DOMPERIDONE
  5. FORMOTEROL [Concomitant]
     Active Substance: FORMOTEROL
  6. LACTULOSE [Concomitant]
     Active Substance: LACTULOSE

REACTIONS (3)
  - Cough [Recovered/Resolved]
  - Flushing [Recovered/Resolved]
  - Rash [Recovered/Resolved]

NARRATIVE: CASE EVENT DATE: 20220118
